FAERS Safety Report 10192511 (Version 9)
Quarter: 2018Q3

REPORT INFORMATION
  Report Type: Report from Study
  Country: BR (occurrence: BR)
  Receive Date: 20140523
  Receipt Date: 20180831
  Transmission Date: 20181010
  Serious: Yes (Other)
  Sender: FDA-Public Use
  Company Number: PHHY2014BR063046

PATIENT
  Age: 40 Year
  Sex: Female
  Weight: 40 kg

DRUGS (5)
  1. ACLASTA [Suspect]
     Active Substance: ZOLEDRONIC ACID
     Indication: PROPHYLAXIS
     Dosage: 1 DF, Q12MO
     Route: 042
     Dates: start: 2010
  2. NEXIUM I.V. [Concomitant]
     Active Substance: ESOMEPRAZOLE SODIUM
     Indication: DYSPEPSIA
     Dosage: 1 DF, QD
     Route: 065
     Dates: start: 2012
  3. ZELMAC [Concomitant]
     Active Substance: TEGASEROD
     Indication: DYSPEPSIA
     Dosage: 1 DF, QD (8 YEARS AGO)
     Route: 048
     Dates: start: 2009
  4. ACLASTA [Suspect]
     Active Substance: ZOLEDRONIC ACID
     Dosage: 1 DF, Q12MO
     Route: 042
     Dates: start: 20160706
  5. ACLASTA [Suspect]
     Active Substance: ZOLEDRONIC ACID
     Indication: OSTEOPOROSIS
     Dosage: 1 DF, Q12MO
     Route: 042
     Dates: start: 2008

REACTIONS (21)
  - Gastritis [Recovering/Resolving]
  - Thyroid calcification [Not Recovered/Not Resolved]
  - Speech disorder [Not Recovered/Not Resolved]
  - Peripheral swelling [Unknown]
  - Infusion site extravasation [Unknown]
  - Gait disturbance [Not Recovered/Not Resolved]
  - Quadriplegia [Not Recovered/Not Resolved]
  - Urinary tract disorder [Recovering/Resolving]
  - Anxiety [Unknown]
  - Influenza [Recovered/Resolved]
  - Agitation [Unknown]
  - Nervousness [Unknown]
  - Urinary tract infection enterococcal [Recovered/Resolved]
  - Urinary tract infection [Recovered/Resolved]
  - Vein rupture [Unknown]
  - Decreased immune responsiveness [Recovered/Resolved]
  - Nervousness [Unknown]
  - Abdominal pain upper [Recovering/Resolving]
  - Nasopharyngitis [Recovered/Resolved]
  - Poor venous access [Unknown]
  - Incorrect dose administered [Unknown]

NARRATIVE: CASE EVENT DATE: 2013
